FAERS Safety Report 7905872-1 (Version None)
Quarter: 2011Q4

REPORT INFORMATION
  Report Type: 
  Country: None (occurrence: None)
  Receive Date: 20111110
  Receipt Date: 20111102
  Transmission Date: 20120403
  Serious: Yes (Hospitalization, Other)
  Sender: FDA-Public Use
  Company Number: US-US-EMD SERONO, INC.-7093511

PATIENT
  Sex: Female

DRUGS (5)
  1. GABAPENTIN [Concomitant]
  2. REBIF [Suspect]
     Indication: MULTIPLE SCLEROSIS
     Dates: start: 20050101
  3. CARBAMAZEPINE [Concomitant]
  4. FLUOXETINE HCL [Concomitant]
  5. VESICARE [Concomitant]

REACTIONS (2)
  - CHOLELITHIASIS [None]
  - POSTOPERATIVE ABSCESS [None]
